FAERS Safety Report 7373740-2 (Version None)
Quarter: 2011Q1

REPORT INFORMATION
  Report Type: 
  Country: None (occurrence: None)
  Receive Date: 20110325
  Receipt Date: 20110315
  Transmission Date: 20110831
  Serious: Yes (Other)
  Sender: FDA-Public Use
  Company Number: AU-JNJFOC-20110309271

PATIENT
  Sex: Male
  Weight: 54 kg

DRUGS (3)
  1. DURAGESIC-100 [Suspect]
     Indication: CANCER PAIN
     Route: 062
  2. TEMAZEPAM [Concomitant]
     Route: 065
  3. ANTIDEPRESSANT [Concomitant]
     Route: 065

REACTIONS (5)
  - AGGRESSION [None]
  - WEIGHT DECREASED [None]
  - DRUG INEFFECTIVE [None]
  - CONSTIPATION [None]
  - PARANOIA [None]
